FAERS Safety Report 24094019 (Version 1)
Quarter: 2024Q3

REPORT INFORMATION
  Report Type: Report from Study
  Country: BR (occurrence: BR)
  Receive Date: 20240716
  Receipt Date: 20240716
  Transmission Date: 20241017
  Serious: Yes (Hospitalization, Other)
  Sender: JOHNSON AND JOHNSON
  Company Number: BR-JNJFOC-20240728895

PATIENT
  Age: 70 Year
  Sex: Female
  Weight: 84 kg

DRUGS (2)
  1. INFLIXIMAB [Suspect]
     Active Substance: INFLIXIMAB
     Indication: Rheumatoid arthritis
     Route: 041
  2. METHOTREXATE [Suspect]
     Active Substance: METHOTREXATE
     Indication: Product used for unknown indication
     Route: 065

REACTIONS (14)
  - Hospitalisation [Unknown]
  - Pulmonary embolism [Unknown]
  - Thrombosis [Unknown]
  - Dyspnoea [Unknown]
  - Gait disturbance [Unknown]
  - Memory impairment [Unknown]
  - Weight decreased [Unknown]
  - Body height decreased [Unknown]
  - Swelling face [Unknown]
  - Paraesthesia [Unknown]
  - Pain [Unknown]
  - Herpes zoster [Unknown]
  - Hypertension [Unknown]
  - Off label use [Unknown]

NARRATIVE: CASE EVENT DATE: 20240601
